FAERS Safety Report 7644779-4 (Version None)
Quarter: 2011Q3

REPORT INFORMATION
  Report Type: 
  Country: None (occurrence: None)
  Receive Date: 20110729
  Receipt Date: 20091122
  Transmission Date: 20111222
  Serious: Yes (Hospitalization, Other)
  Sender: FDA-Public Use
  Company Number: US-BAYER-200940546NA

PATIENT
  Age: 58 Year
  Sex: Male
  Weight: 122.45 kg

DRUGS (8)
  1. BENICAR [Concomitant]
  2. ACETYLSALICYLIC ACID SRT [Concomitant]
  3. VERSED [Concomitant]
     Dosage: UNK
     Route: 042
     Dates: start: 20061009
  4. TRASYLOL [Suspect]
     Indication: AORTIC VALVE REPAIR
     Dosage: UNK
     Route: 042
     Dates: start: 20061009, end: 20061009
  5. PROTAMINE [Concomitant]
     Dosage: UNK
     Route: 042
     Dates: start: 20061009
  6. AMICAR [Concomitant]
     Dosage: 5 G, UNK
     Route: 042
     Dates: start: 20061009
  7. FRESH FROZEN PLASMA [Concomitant]
     Dosage: 2 U, UNK
     Route: 042
     Dates: start: 20060209
  8. HEPARIN [Concomitant]
     Dosage: UNK
     Route: 042
     Dates: start: 20061009

REACTIONS (12)
  - STRESS [None]
  - RENAL FAILURE [None]
  - EMOTIONAL DISTRESS [None]
  - UNEVALUABLE EVENT [None]
  - RENAL IMPAIRMENT [None]
  - PSYCHIATRIC SYMPTOM [None]
  - PAIN [None]
  - INJURY [None]
  - RENAL INJURY [None]
  - ANXIETY [None]
  - FEAR [None]
  - ANHEDONIA [None]
